FAERS Safety Report 4333399-5 (Version None)
Quarter: 2004Q1

REPORT INFORMATION
  Report Type: 
  Country: None (occurrence: None)
  Receive Date: 20040330
  Receipt Date: 20040315
  Transmission Date: 20041129
  Serious: Yes (Hospitalization)
  Sender: FDA-Public Use
  Company Number: M04-INT-044

PATIENT
  Age: 47 Year
  Sex: Male

DRUGS (2)
  1. INTEGRILIN [Suspect]
     Indication: CORONARY ANGIOPLASTY
  2. HEPARIN [Concomitant]

REACTIONS (2)
  - THROMBOCYTOPENIA [None]
  - TYPE IV HYPERSENSITIVITY REACTION [None]
